FAERS Safety Report 9402822 (Version 2)
Quarter: 2014Q3

REPORT INFORMATION
  Report Type: Spontaneous
  Country: US (occurrence: None)
  Receive Date: 20130712
  Receipt Date: 20140804
  Transmission Date: 20150326
  Serious: Yes (Death, Life-Threatening, Hospitalization, Other)
  Sender: FDA-Public Use
  Company Number: 1713747-2013-99918

PATIENT
  Age: 67 Year
  Sex: Male
  Weight: 114 kg

DRUGS (17)
  1. 0.9% SODIUM CHLORIDE [Suspect]
     Active Substance: SODIUM CHLORIDE
     Dates: start: 20071001
  2. ISOSORBIDE [Concomitant]
     Active Substance: ISOSORBIDE
  3. DIOVAN [Concomitant]
     Active Substance: VALSARTAN
  4. NATURALYTE [Concomitant]
     Active Substance: ACETIC ACID\SODIUM ACETATE
  5. LANTUS [Concomitant]
     Active Substance: INSULIN GLARGINE
  6. ZEMPLAR [Concomitant]
     Active Substance: PARICALCITOL
  7. GRANUFLO [Concomitant]
     Active Substance: ACETIC ACID\SODIUM ACETATE
  8. ASPIRIN. [Concomitant]
     Active Substance: ASPIRIN
  9. TORSEMIDE. [Concomitant]
     Active Substance: TORSEMIDE
  10. LESCOL XL [Concomitant]
     Active Substance: FLUVASTATIN SODIUM
  11. DIALYZER [Concomitant]
  12. FRESENIUS HEMODIALYSIS MACHINE [Concomitant]
  13. BLOODLINES [Concomitant]
  14. HYDRALAZINE [Concomitant]
     Active Substance: HYDRALAZINE HYDROCHLORIDE
  15. ATENOLOL. [Concomitant]
     Active Substance: ATENOLOL
  16. STARLIX [Concomitant]
     Active Substance: NATEGLINIDE
  17. TUMS [Concomitant]
     Active Substance: CALCIUM CARBONATE

REACTIONS (6)
  - Cardiac failure [None]
  - Muscle spasms [None]
  - Dyspnoea [None]
  - Cardio-respiratory arrest [None]
  - Cardiovascular disorder [None]
  - Weight increased [None]

NARRATIVE: CASE EVENT DATE: 20071003
